FAERS Safety Report 7036888-8 (Version None)
Quarter: 2010Q4

REPORT INFORMATION
  Report Type: 
  Country: None (occurrence: None)
  Receive Date: 20101011
  Receipt Date: 20100930
  Transmission Date: 20110411
  Serious: No
  Sender: FDA-Public Use
  Company Number: US-B.I. PHARMACEUTICALS,INC./RIDGEFIELD-2010-BP-11060BP

PATIENT
  Age: 76 Year
  Sex: Male

DRUGS (2)
  1. MIRAPEX [Suspect]
     Indication: PARKINSON'S DISEASE
     Dosage: 9 MG
     Route: 048
     Dates: start: 20050101
  2. NEURONTIN [Suspect]
     Indication: NEURALGIA
     Dates: start: 20100901

REACTIONS (4)
  - FALL [None]
  - HALLUCINATION [None]
  - INAPPROPRIATE AFFECT [None]
  - SOMNOLENCE [None]
